FAERS Safety Report 8806347 (Version 1)
Quarter: 2012Q4

REPORT INFORMATION
  Report Type: 
  Country: BR (occurrence: BR)
  Receive Date: 20120925
  Receipt Date: 20120925
  Transmission Date: 20130627
  Serious: Yes (Hospitalization)
  Sender: FDA-Public Use
  Company Number: BR-ASTELLAS-2012US007930

PATIENT
  Sex: Female
  Weight: 60 kg

DRUGS (3)
  1. VESICARE [Suspect]
     Indication: PRODUCT USED FOR UNKNOWN INDICATION
     Dosage: 10 mg, UID/QD
     Route: 048
     Dates: start: 20120813, end: 20120910
  2. VESICARE [Suspect]
     Dosage: 5 mg, Unknown/D
     Route: 048
  3. PURAN T4 [Concomitant]
     Indication: PRODUCT USED FOR UNKNOWN INDICATION
     Dosage: UNK
     Route: 065

REACTIONS (3)
  - Depression [Recovered/Resolved]
  - Skin discolouration [Recovered/Resolved]
  - Asthenia [Recovered/Resolved]
